FAERS Safety Report 10006252 (Version 1)
Quarter: 2014Q1

REPORT INFORMATION
  Report Type: Spontaneous
  Country: US (occurrence: US)
  Receive Date: 20140313
  Receipt Date: 20140313
  Transmission Date: 20141002
  Serious: No
  Sender: FDA-Public Use
  Company Number: US-ENDO PHARMACEUTICALS INC.-PMCO20130004

PATIENT
  Age: 69 Year
  Sex: Female

DRUGS (1)
  1. PROMETHAZINE HYDROCHLORIDE WITH CODEINE SYRUP [Suspect]
     Indication: COUGH
     Dosage: 6.25 MG/ 10 MG PER 5 ML
     Route: 048
     Dates: start: 201305, end: 201305

REACTIONS (3)
  - Hypoaesthesia oral [Unknown]
  - Toothache [Unknown]
  - Drug ineffective [Recovered/Resolved]
